FAERS Safety Report 12210399 (Version 1)
Quarter: 2016Q1

REPORT INFORMATION
  Report Type: Spontaneous
  Country: US (occurrence: None)
  Receive Date: 20160324
  Receipt Date: 20160324
  Transmission Date: 20160526
  Serious: Yes (Life-Threatening, Hospitalization, Disabling, Other)
  Sender: FDA-Public Use
  Company Number: None

PATIENT
  Age: 42 Year
  Sex: Male
  Weight: 68.04 kg

DRUGS (6)
  1. CIPRO [Suspect]
     Active Substance: CIPROFLOXACIN HYDROCHLORIDE
     Indication: URINARY TRACT INFECTION
     Route: 048
  2. NORVASC [Concomitant]
     Active Substance: AMLODIPINE BESYLATE
  3. CIPRO [Suspect]
     Active Substance: CIPROFLOXACIN HYDROCHLORIDE
     Indication: PAIN
     Route: 048
  4. XANAX [Concomitant]
     Active Substance: ALPRAZOLAM
  5. LIPITOR [Concomitant]
     Active Substance: ATORVASTATIN CALCIUM
  6. BACTRIM [Suspect]
     Active Substance: SULFAMETHOXAZOLE\TRIMETHOPRIM

REACTIONS (16)
  - Tendon disorder [None]
  - Lung disorder [None]
  - Activities of daily living impaired [None]
  - Stevens-Johnson syndrome [None]
  - Tooth fracture [None]
  - Eye disorder [None]
  - Skin disorder [None]
  - Tooth disorder [None]
  - Quality of life decreased [None]
  - Tooth discolouration [None]
  - Drug withdrawal syndrome [None]
  - Pain in extremity [None]
  - Arthropathy [None]
  - Pain [None]
  - Arthralgia [None]
  - Sunburn [None]

NARRATIVE: CASE EVENT DATE: 19990901
